FAERS Safety Report 6144456-5 (Version None)
Quarter: 2009Q2

REPORT INFORMATION
  Report Type: 
  Country: None (occurrence: None)
  Receive Date: 20090406
  Receipt Date: 20090327
  Transmission Date: 20091009
  Serious: Yes (Hospitalization, Other)
  Sender: FDA-Public Use
  Company Number: JP-ROCHE-572107

PATIENT
  Sex: Male
  Weight: 50.8 kg

DRUGS (10)
  1. CAPECITABINE [Suspect]
     Indication: METASTATIC GASTRIC CANCER
     Dosage: FREQUENCY REPORTED AS: BID.D1-14Q3W
     Route: 048
     Dates: start: 20071212
  2. CAPECITABINE [Suspect]
     Dosage: FREQUENCY REPORTED AS: BID.D1-14Q3W, DOSE REDUCED.
     Route: 048
     Dates: start: 20080105, end: 20080407
  3. CAPECITABINE [Suspect]
     Dosage: FREQUENCY REPORTED AS: BID.D1-14Q3W, DOSE REDUCED.
     Route: 048
     Dates: start: 20080430, end: 20080514
  4. CAPECITABINE [Suspect]
     Dosage: FREQUENCY REPORTED AS: BID.D1-14Q3W
     Route: 048
     Dates: start: 20080729
  5. BLINDED BEVACIZUMAB [Suspect]
     Indication: METASTATIC GASTRIC CANCER
     Dosage: FREQUENCY REPORTED AS:D1Q3W DOSAGE FORM REPORTED AS INFUSION
     Route: 042
     Dates: start: 20071212, end: 20080514
  6. BLINDED BEVACIZUMAB [Suspect]
     Dosage: FREQUENCY REPORTED AS:D1Q3W DOSAGE FORM REPORTED AS INFUSION
     Route: 042
     Dates: end: 20080729
  7. BLINDED BEVACIZUMAB [Suspect]
     Route: 042
     Dates: start: 20080820
  8. CISPLATIN [Suspect]
     Indication: METASTATIC GASTRIC CANCER
     Dosage: FREQUENCY REPORTED AS : D1Q3W DOSAGE FORM REPORTED AS INFUSION
     Route: 042
     Dates: start: 20071212
  9. CISPLATIN [Suspect]
     Dosage: DOSE: 96.6 MG/BODY, DOSE WAS REDUCED.
     Route: 042
     Dates: start: 20080105, end: 20080407
  10. CISPLATIN [Suspect]
     Dosage: FREQUENCY REPORTED AS : D1Q3W DOSAGE FORM REPORTED AS INFUSION
     Route: 042
     Dates: start: 20080729

REACTIONS (3)
  - SPLENIC INFARCTION [None]
  - WOUND DEHISCENCE [None]
  - WOUND INFECTION [None]
